FAERS Safety Report 13896000 (Version 1)
Quarter: 2017Q3

REPORT INFORMATION
  Report Type: Spontaneous
  Country: US (occurrence: US)
  Receive Date: 20170823
  Receipt Date: 20170823
  Transmission Date: 20171127
  Serious: No
  Sender: FDA-Public Use
  Company Number: US-TEVA-722224ACC

PATIENT
  Age: 73 Year
  Sex: Male
  Weight: 83 kg

DRUGS (1)
  1. METOPROLOL SUCCINATE. [Suspect]
     Active Substance: METOPROLOL SUCCINATE
     Indication: ATRIAL FIBRILLATION
     Route: 065
     Dates: start: 20161208

REACTIONS (3)
  - Weight increased [Recovered/Resolved]
  - Anxiety [Unknown]
  - Hunger [Unknown]

NARRATIVE: CASE EVENT DATE: 20161211
